FAERS Safety Report 8539740-1 (Version None)
Quarter: 2012Q3

REPORT INFORMATION
  Report Type: 
  Country: None (occurrence: None)
  Receive Date: 20120726
  Receipt Date: 20111121
  Transmission Date: 20120928
  Serious: No
  Sender: FDA-Public Use
  Company Number: US-ASTRAZENECA-2010SE18283

PATIENT
  Sex: Female

DRUGS (2)
  1. SEROQUEL [Suspect]
     Route: 048
  2. SEROQUEL [Suspect]
     Indication: SLEEP DISORDER
     Route: 048

REACTIONS (10)
  - EAR INFECTION [None]
  - DRUG DOSE OMISSION [None]
  - DRUG INEFFECTIVE [None]
  - OTORRHOEA [None]
  - RHINORRHOEA [None]
  - STRESS [None]
  - INSOMNIA [None]
  - LACRIMATION INCREASED [None]
  - SINUS DISORDER [None]
  - MUCOSAL DRYNESS [None]
